FAERS Safety Report 10759203 (Version 1)
Quarter: 2015Q1

REPORT INFORMATION
  Report Type: Spontaneous
  Country: US (occurrence: None)
  Receive Date: 20150126
  Receipt Date: 20150126
  Transmission Date: 20150721
  Serious: Yes (Hospitalization)
  Sender: FDA-Public Use
  Company Number: MC201300006

PATIENT
  Age: 55 Year
  Sex: Male

DRUGS (1)
  1. ANGIOMAX [Suspect]
     Active Substance: BIVALIRUDIN
     Indication: PERCUTANEOUS CORONARY INTERVENTION
     Dosage: (NOT OTHERWISE SPECIFIED)
     Route: 040
     Dates: start: 201212, end: 201212

REACTIONS (2)
  - Coronary artery thrombosis [None]
  - Coagulation time abnormal [None]

NARRATIVE: CASE EVENT DATE: 201212
